FAERS Safety Report 10334259 (Version 1)
Quarter: 2014Q3

REPORT INFORMATION
  Report Type: Spontaneous
  Country: US (occurrence: None)
  Receive Date: 20140721
  Receipt Date: 20140721
  Transmission Date: 20150326
  Serious: Yes (Other)
  Sender: FDA-Public Use
  Company Number: AUR-APL-2014-07513

PATIENT
  Age: 37 Year
  Sex: Female

DRUGS (3)
  1. LEVOTHYROXINE (LEVOTHYROXINE SODIUM) [Concomitant]
  2. TRAMADOL [Suspect]
     Active Substance: TRAMADOL
     Indication: FIBROMYALGIA
  3. DULOXETINE (DULOXETINE) [Concomitant]

REACTIONS (1)
  - Sleep apnoea syndrome [None]
